FAERS Safety Report 9761551 (Version 1)
Quarter: 2013Q4

REPORT INFORMATION
  Report Type: Spontaneous
  Country: US (occurrence: US)
  Receive Date: 20131216
  Receipt Date: 20131216
  Transmission Date: 20140711
  Serious: No
  Sender: FDA-Public Use
  Company Number: US-ABBVIE-13P-163-1088131-00

PATIENT
  Age: 64 Year
  Sex: Female
  Weight: 52.66 kg

DRUGS (2)
  1. PROGESTERONE [Suspect]
     Indication: HORMONE REPLACEMENT THERAPY
     Dosage: TWO DOSES
     Route: 048
     Dates: start: 201301, end: 201301
  2. PROGESTERONE [Suspect]
     Route: 048
     Dates: start: 20130404

REACTIONS (2)
  - Headache [Recovered/Resolved]
  - Hypertension [Recovered/Resolved]
